FAERS Safety Report 7596450-5 (Version None)
Quarter: 2011Q3

REPORT INFORMATION
  Report Type: 
  Country: None (occurrence: None)
  Receive Date: 20110708
  Receipt Date: 20110629
  Transmission Date: 20111222
  Serious: Yes (Hospitalization)
  Sender: FDA-Public Use
  Company Number: US-BIOGENIDEC-2011BI018260

PATIENT
  Age: 43 Year
  Sex: Female

DRUGS (2)
  1. TYSABRI [Suspect]
     Indication: MULTIPLE SCLEROSIS
     Route: 042
     Dates: start: 20110228, end: 20110401
  2. BACLOFEN [Concomitant]
     Indication: MUSCLE SPASMS

REACTIONS (10)
  - VOMITING [None]
  - MULTIPLE SCLEROSIS RELAPSE [None]
  - MOVEMENT DISORDER [None]
  - DEVICE RELATED INFECTION [None]
  - APHAGIA [None]
  - NAUSEA [None]
  - DIZZINESS [None]
  - ASTHENIA [None]
  - DEEP VEIN THROMBOSIS [None]
  - CHILLS [None]
